FAERS Safety Report 19082654 (Version 2)
Quarter: 2021Q4

REPORT INFORMATION
  Report Type: Spontaneous
  Country: US (occurrence: US)
  Receive Date: 20210401
  Receipt Date: 20211203
  Transmission Date: 20220303
  Serious: No
  Sender: FDA-Public Use
  Company Number: US-SA-SAC20210326000725

PATIENT
  Age: 58 Year
  Sex: Female

DRUGS (19)
  1. DUPIXENT [Suspect]
     Active Substance: DUPILUMAB
     Indication: Illness
     Dosage: 600 MG, 1X
     Route: 058
     Dates: start: 202103, end: 202103
  2. DUPIXENT [Suspect]
     Active Substance: DUPILUMAB
     Dosage: 300 MG, QOW
     Route: 058
  3. BIOTIN [Concomitant]
     Active Substance: BIOTIN
  4. MELATONIN [Concomitant]
     Active Substance: MELATONIN
  5. VITAMIN C [Concomitant]
     Active Substance: ASCORBIC ACID
  6. VITAMIN D3 [Concomitant]
     Active Substance: CHOLECALCIFEROL
  7. TEMAZEPAM [Concomitant]
     Active Substance: TEMAZEPAM
  8. PROAIR RESPICLICK [Concomitant]
     Active Substance: ALBUTEROL SULFATE
  9. ONDANSETRON [Concomitant]
     Active Substance: ONDANSETRON
  10. PROGESTERONE [Concomitant]
     Active Substance: PROGESTERONE
  11. INTRAROSA [Concomitant]
     Active Substance: PRASTERONE
  12. GABAPENTIN [Concomitant]
     Active Substance: GABAPENTIN
  13. ROPINIROLE [Concomitant]
     Active Substance: ROPINIROLE
  14. AZITHROMYCIN [Concomitant]
     Active Substance: AZITHROMYCIN
  15. TACROLIMUS [Concomitant]
     Active Substance: TACROLIMUS
  16. CLOBETASOL [Concomitant]
     Active Substance: CLOBETASOL
  17. CELECOXIB [Concomitant]
     Active Substance: CELECOXIB
  18. FISH OIL [Concomitant]
     Active Substance: FISH OIL
  19. ESTRADIOL [Concomitant]
     Active Substance: ESTRADIOL

REACTIONS (5)
  - Injection site reaction [Recovered/Resolved]
  - Injection site pruritus [Recovered/Resolved]
  - Injection site warmth [Recovered/Resolved]
  - Injection site mass [Recovered/Resolved]
  - Product use in unapproved indication [Unknown]

NARRATIVE: CASE EVENT DATE: 20210320
